FAERS Safety Report 12201280 (Version 1)
Quarter: 2016Q1

REPORT INFORMATION
  Report Type: Spontaneous
  Country: US (occurrence: US)
  Receive Date: 20160322
  Receipt Date: 20160322
  Transmission Date: 20160526
  Serious: No
  Sender: FDA-Public Use
  Company Number: US-SA-2015SA043610

PATIENT
  Age: 65 Year
  Sex: Female

DRUGS (2)
  1. NASACORT ALLERGY 24HR [Suspect]
     Active Substance: TRIAMCINOLONE ACETONIDE
     Indication: SINUSITIS
     Dosage: FREQUENCY: 1-2 TIMES A DAY
     Route: 065
     Dates: start: 20150313, end: 20150321
  2. NASACORT ALLERGY 24HR [Suspect]
     Active Substance: TRIAMCINOLONE ACETONIDE
     Indication: MULTIPLE ALLERGIES
     Dosage: FREQUENCY: 1-2 TIMES A DAY
     Route: 065
     Dates: start: 20150313, end: 20150321

REACTIONS (1)
  - Drug ineffective [Unknown]
